FAERS Safety Report 14128100 (Version 1)
Quarter: 2017Q4

REPORT INFORMATION
  Report Type: Spontaneous
  Country: US (occurrence: None)
  Receive Date: 20171025
  Receipt Date: 20171025
  Transmission Date: 20180321
  Serious: Yes (Death)
  Sender: FDA-Public Use
  Company Number: None

PATIENT
  Sex: Male

DRUGS (16)
  1. PANTOPRAZOLE [Concomitant]
     Active Substance: PANTOPRAZOLE
  2. MORPHINE SUL [Concomitant]
     Active Substance: MORPHINE SULFATE
  3. LOVENOX [Suspect]
     Active Substance: ENOXAPARIN SODIUM
  4. FLOMAX [Concomitant]
     Active Substance: TAMSULOSIN HYDROCHLORIDE
  5. ENDOCET [Concomitant]
     Active Substance: ACETAMINOPHEN\OXYCODONE HYDROCHLORIDE
  6. VENLAFAXINE [Concomitant]
     Active Substance: VENLAFAXINE HYDROCHLORIDE
  7. PREDNISONE. [Concomitant]
     Active Substance: PREDNISONE
  8. CINNAMON. [Concomitant]
     Active Substance: CINNAMON
  9. ESBRIET [Suspect]
     Active Substance: PIRFENIDONE
     Indication: IDIOPATHIC PULMONARY FIBROSIS
     Route: 048
  10. ALBUTEROL. [Concomitant]
     Active Substance: ALBUTEROL
  11. ATORVASTATIN [Suspect]
     Active Substance: ATORVASTATIN
  12. ALPRAZOLAM. [Concomitant]
     Active Substance: ALPRAZOLAM
  13. WARFARIN [Concomitant]
     Active Substance: WARFARIN
  14. OMEGA-3 ACIDS [Concomitant]
     Active Substance: OMEGA-3 FATTY ACIDS
  15. VIAGRA [Concomitant]
     Active Substance: SILDENAFIL CITRATE
  16. SPIRONOLACT [Concomitant]
     Active Substance: SPIRONOLACTONE

REACTIONS (1)
  - Death [None]
